FAERS Safety Report 8980165 (Version 4)
Quarter: 2013Q2

REPORT INFORMATION
  Report Type: Report from Study
  Country: BR (occurrence: BR)
  Receive Date: 20121221
  Receipt Date: 20130418
  Transmission Date: 20140414
  Serious: Yes (Hospitalization, Other)
  Sender: FDA-Public Use
  Company Number: PHHY2012BR115600

PATIENT
  Sex: Female
  Weight: 58 kg

DRUGS (10)
  1. SANDOSTATIN LAR [Suspect]
     Indication: ACROMEGALY
     Dosage: 20 MG, EVERY 28 DAYS
     Route: 030
     Dates: start: 201206
  2. AMLODIPIN [Concomitant]
     Indication: HYPERTENSION
     Dosage: 5 MG, QD AT MORNING
  3. LOSARTAN [Concomitant]
     Indication: CARDIAC DISORDER
     Dosage: 25 MG, QD
  4. CALCIUM CARBONATE [Concomitant]
     Indication: OSTEOPOROSIS
     Dosage: 600 MG, QD AFTER LUNCH
     Dates: start: 2012
  5. CARVEDILOL [Concomitant]
     Indication: CARDIAC DISORDER
     Dosage: 3125 MG, QD
  6. SODIUM ALENDRONATE [Concomitant]
     Indication: OSTEOPOROSIS
     Dosage: 70 MG, WEEKLY
  7. VITAMIN D [Concomitant]
     Indication: VITAMIN D DEFICIENCY
     Dosage: 50 DRP, QW
  8. DIPYRONE [Concomitant]
     Dosage: 40 DRP, PRN
     Route: 048
  9. DORFLEX [Concomitant]
     Indication: HEADACHE
     Dosage: 1 DF, PRN
  10. DORFLEX [Concomitant]
     Indication: PAIN IN EXTREMITY

REACTIONS (6)
  - Cardiac disorder [Recovered/Resolved]
  - Bradycardia [Recovered/Resolved]
  - Procedural pain [Recovering/Resolving]
  - Burning sensation [Recovering/Resolving]
  - Weight increased [Recovering/Resolving]
  - Alopecia [Not Recovered/Not Resolved]
